FAERS Safety Report 6915017-2 (Version None)
Quarter: 2010Q3

REPORT INFORMATION
  Report Type: 
  Country: None (occurrence: None)
  Receive Date: 20100809
  Receipt Date: 20100728
  Transmission Date: 20110219
  Serious: Yes (Hospitalization, Other)
  Sender: FDA-Public Use
  Company Number: US-ROCHE-665905

PATIENT
  Sex: Male
  Weight: 86.2 kg

DRUGS (3)
  1. ACCUTANE [Suspect]
     Dosage: STRENGTH 40 MG AND 20 MG
     Route: 048
     Dates: start: 20010830, end: 20011122
  2. AMNESTEEM [Suspect]
     Dosage: STRENGTH 40 MG AND 20 MG
     Route: 065
     Dates: start: 20060524, end: 20060926
  3. AMNESTEEM [Suspect]
     Route: 065
     Dates: start: 20061002, end: 20061102

REACTIONS (10)
  - ANAL FISSURE [None]
  - ANAL FISTULA [None]
  - BRONCHITIS [None]
  - COLITIS ULCERATIVE [None]
  - DEPRESSION [None]
  - ILEUS [None]
  - INFLAMMATORY BOWEL DISEASE [None]
  - LIP DRY [None]
  - PHARYNGITIS [None]
  - XEROSIS [None]
